FAERS Safety Report 10449696 (Version 1)
Quarter: 2014Q3

REPORT INFORMATION
  Report Type: Spontaneous
  Country: US (occurrence: US)
  Receive Date: 20140912
  Receipt Date: 20140912
  Transmission Date: 20150326
  Serious: No
  Sender: FDA-Public Use
  Company Number: US-INCYTE CORPORATION-2014IN001804

PATIENT
  Sex: Male
  Weight: 50.34 kg

DRUGS (11)
  1. BUMETANIDE. [Concomitant]
     Active Substance: BUMETANIDE
  2. JAKAFI [Suspect]
     Active Substance: RUXOLITINIB
     Indication: SPLENIC NEOPLASM MALIGNANCY UNSPECIFIED
     Dosage: 10 MG, BID
     Route: 048
  3. CARVEDILOL. [Concomitant]
     Active Substance: CARVEDILOL
  4. ALLOPURINOL. [Concomitant]
     Active Substance: ALLOPURINOL
  5. JAKAFI [Suspect]
     Active Substance: RUXOLITINIB
     Dosage: 10 MG, QD
     Route: 048
  6. SPIRIVA [Concomitant]
     Active Substance: TIOTROPIUM BROMIDE MONOHYDRATE
  7. ADEMPAS [Concomitant]
     Active Substance: RIOCIGUAT
  8. TEMAZEPAM. [Concomitant]
     Active Substance: TEMAZEPAM
  9. KLOR-CON [Concomitant]
     Active Substance: POTASSIUM CHLORIDE
  10. METOLAZONE. [Concomitant]
     Active Substance: METOLAZONE
  11. ALBUTEROL                          /00139501/ [Concomitant]
     Active Substance: ALBUTEROL

REACTIONS (1)
  - Pain [Unknown]
